FAERS Safety Report 4373662-5 (Version None)
Quarter: 2004Q1

REPORT INFORMATION
  Report Type: 
  Country: None (occurrence: None)
  Receive Date: 20040305
  Receipt Date: 20040107
  Transmission Date: 20041129
  Serious: Yes (Other)
  Sender: FDA-Public Use
  Company Number: 2003UW15659

PATIENT
  Age: 19 Year
  Sex: Male
  Weight: 90.7194 kg

DRUGS (2)
  1. CRESTOR [Suspect]
     Indication: HYPERCHOLESTEROLAEMIA
     Dosage: 10 MG QD PO
     Route: 048
     Dates: start: 20031120, end: 20031125
  2. ZETIA [Concomitant]

REACTIONS (2)
  - NECK PAIN [None]
  - PAIN IN EXTREMITY [None]
